FAERS Safety Report 9303925 (Version 2)
Quarter: 2013Q3

REPORT INFORMATION
  Report Type: Report from Study
  Country: BR (occurrence: BR)
  Receive Date: 20130522
  Receipt Date: 20130723
  Transmission Date: 20140515
  Serious: Yes (Hospitalization)
  Sender: FDA-Public Use
  Company Number: BR-ROCHE-1226478

PATIENT
  Age: 35 Year
  Sex: Female
  Weight: 66 kg

DRUGS (9)
  1. XOLAIR [Suspect]
     Indication: ASTHMA
     Dosage: 2 AMPOULES IN ONE MONTH
     Route: 065
     Dates: start: 201104
  2. XOLAIR [Suspect]
     Dosage: ONE AMPOULES PER MONTH
     Route: 065
  3. XOLAIR [Suspect]
     Route: 065
     Dates: start: 20130429
  4. AEROLIN [Concomitant]
     Route: 065
     Dates: start: 2011
  5. ALENIA (BRAZIL) [Concomitant]
     Dosage: 12/400
     Route: 065
     Dates: start: 2011
  6. HYPERIUM [Concomitant]
     Route: 065
     Dates: start: 2010
  7. SINGULAIR [Concomitant]
     Route: 065
     Dates: start: 2009
  8. PANTOPRAZOLE [Concomitant]
     Route: 065
     Dates: start: 2012
  9. FLUOXETINE [Concomitant]
     Route: 065
     Dates: start: 2010

REACTIONS (4)
  - Respiratory tract infection [Recovered/Resolved]
  - Weight decreased [Recovered/Resolved]
  - Asthma [Recovered/Resolved]
  - Asthmatic crisis [Recovered/Resolved]
